FAERS Safety Report 12921511 (Version 2)
Quarter: 2017Q1

REPORT INFORMATION
  Report Type: Report from Study
  Country: AT (occurrence: AT)
  Receive Date: 20161108
  Receipt Date: 20170125
  Transmission Date: 20170428
  Serious: Yes (Other)
  Sender: FDA-Public Use
  Company Number: AT-PFIZER INC-2016513130

PATIENT

DRUGS (1)
  1. IBUTILIDE FUMARATE. [Suspect]
     Active Substance: IBUTILIDE FUMARATE
     Indication: ATRIAL FIBRILLATION
     Dosage: 0.87 MG, (10 MINUTES)
     Route: 042

REACTIONS (1)
  - Electrocardiogram QT prolonged [Recovered/Resolved]
